FAERS Safety Report 5459399-X (Version None)
Quarter: 2007Q3

REPORT INFORMATION
  Report Type: 
  Country: None (occurrence: None)
  Receive Date: 20070919
  Receipt Date: 20070911
  Transmission Date: 20080115
  Serious: Yes (Hospitalization, Other)
  Sender: FDA-Public Use
  Company Number: US-ELI_LILLY_AND_COMPANY-US200708000645

PATIENT
  Age: 57 Year
  Sex: Female

DRUGS (5)
  1. FORTEO [Suspect]
     Indication: OSTEOPOROSIS
     Dosage: UNK, UNK
     Dates: start: 20050101, end: 20060601
  2. FORTEO [Suspect]
     Dosage: UNK, UNK
     Dates: start: 20061201, end: 20070101
  3. PREDNISONE [Concomitant]
     Dosage: 2 MG, DAILY (1/D)
  4. FOSAMAX [Concomitant]
     Indication: OSTEOPOROSIS
  5. ACTONEL [Concomitant]
     Indication: OSTEOPOROSIS

REACTIONS (7)
  - ARRHYTHMIA [None]
  - ASTHENIA [None]
  - FATIGUE [None]
  - GASTROINTESTINAL DISORDER [None]
  - INTESTINAL OBSTRUCTION [None]
  - NAUSEA [None]
  - VOMITING [None]
